FAERS Safety Report 4900207-0 (Version None)
Quarter: 2006Q1

REPORT INFORMATION
  Report Type: 
  Country: None (occurrence: None)
  Receive Date: 20060203
  Receipt Date: 20051017
  Transmission Date: 20060701
  Serious: No
  Sender: FDA-Public Use
  Company Number: US-GLAXOSMITHKLINE-A0579369A

PATIENT

DRUGS (2)
  1. ARIXTRA [Suspect]
     Route: 058
  2. NO CONCURRENT MEDICATION [Concomitant]

REACTIONS (1)
  - HAEMATOMA [None]
